FAERS Safety Report 19745018 (Version 1)
Quarter: 2021Q3

REPORT INFORMATION
  Report Type: Spontaneous
  Country: AU (occurrence: AU)
  Receive Date: 20210825
  Receipt Date: 20210825
  Transmission Date: 20211014
  Serious: Yes (Other)
  Sender: FDA-Public Use
  Company Number: AU-B.I. PHARMACEUTICALS,INC./RIDGEFIELD-2021-BI-121851

PATIENT
  Age: 80 Year
  Sex: Male
  Weight: 68 kg

DRUGS (10)
  1. ESBRIET [Suspect]
     Active Substance: PIRFENIDONE
     Indication: IDIOPATHIC PULMONARY FIBROSIS
     Dosage: DOSE: 2403 MILLIGRAM , INTERVAL: 1 DAY
     Route: 048
     Dates: start: 201902, end: 202012
  2. ESBRIET [Suspect]
     Active Substance: PIRFENIDONE
     Indication: INTERSTITIAL LUNG DISEASE
  3. METFORMINHYDROCHLORID [Concomitant]
     Indication: PRODUCT USED FOR UNKNOWN INDICATION
     Dosage: DOSE: 500 MILLIGRAM  INTERVAL: 1 DAY
     Route: 048
     Dates: start: 202012
  4. SPIRACTIN [SPIRONOLACTONE] [Concomitant]
     Active Substance: SPIRONOLACTONE
     Indication: PULMONARY HYPERTENSION
  5. SILDENAFIL. [Suspect]
     Active Substance: SILDENAFIL
     Indication: PULMONARY HYPERTENSION
     Dosage: DOSE: 50 MILLIGRAM , INTERVAL: 1 DAY
     Route: 048
     Dates: start: 202010, end: 202010
  6. OFEV [Suspect]
     Active Substance: NINTEDANIB
     Indication: IDIOPATHIC PULMONARY FIBROSIS
     Route: 048
     Dates: start: 202012
  7. NEXIUM [Concomitant]
     Active Substance: ESOMEPRAZOLE MAGNESIUM
     Indication: PRODUCT USED FOR UNKNOWN INDICATION
     Dosage: DOSE: 20 MILLIGRAM  INTERVAL: 1 DAY
     Route: 048
     Dates: start: 2011
  8. PANAFCORT [Concomitant]
     Active Substance: PREDNISONE
     Indication: PULMONARY HYPERTENSION
     Dosage: DOSE: 4 MILLIGRAM
     Route: 048
     Dates: start: 201902
  9. SPIRACTIN [SPIRONOLACTONE] [Concomitant]
     Active Substance: SPIRONOLACTONE
     Indication: BLOOD PRESSURE MEASUREMENT
     Dosage: DOSE: 25 MILLIGRAM
     Route: 048
     Dates: start: 202006
  10. OFEV [Suspect]
     Active Substance: NINTEDANIB
     Indication: INTERSTITIAL LUNG DISEASE

REACTIONS (14)
  - Dizziness [Recovered/Resolved]
  - Dyspnoea [Unknown]
  - Decreased appetite [Not Recovered/Not Resolved]
  - Nausea [Not Recovered/Not Resolved]
  - Photosensitivity reaction [Recovered/Resolved]
  - Drug intolerance [Unknown]
  - Polymyalgia rheumatica [Unknown]
  - Muscle spasms [Unknown]
  - Syncope [Unknown]
  - Constipation [Recovering/Resolving]
  - Dry mouth [Not Recovered/Not Resolved]
  - Pulmonary hypertension [Unknown]
  - Weight decreased [Not Recovered/Not Resolved]
  - Quality of life decreased [Unknown]

NARRATIVE: CASE EVENT DATE: 201902
